FAERS Safety Report 22651615 (Version 3)
Quarter: 2023Q4

REPORT INFORMATION
  Report Type: Spontaneous
  Country: US (occurrence: US)
  Receive Date: 20230628
  Receipt Date: 20231129
  Transmission Date: 20240109
  Serious: No
  Sender: FDA-Public Use
  Company Number: US-PFIZER INC-202300229913

PATIENT
  Age: 65 Year
  Sex: Female
  Weight: 79.4 kg

DRUGS (1)
  1. PAXLOVID [Suspect]
     Active Substance: NIRMATRELVIR\RITONAVIR
     Indication: COVID-19 treatment
     Dosage: UNK
     Dates: start: 202306

REACTIONS (2)
  - Blister [Unknown]
  - Blood blister [Unknown]

NARRATIVE: CASE EVENT DATE: 20230601
